FAERS Safety Report 6937436-0 (Version None)
Quarter: 2010Q3

REPORT INFORMATION
  Report Type: 
  Country: None (occurrence: None)
  Receive Date: 20100823
  Receipt Date: 20100817
  Transmission Date: 20110219
  Serious: Yes (Hospitalization)
  Sender: FDA-Public Use
  Company Number: US-ROCHE-691693

PATIENT
  Sex: Female
  Weight: 88.2 kg

DRUGS (24)
  1. TOCILIZUMAB [Suspect]
     Indication: RHEUMATOID ARTHRITIS
     Dosage: LAST DOSE PRIOR TO SAE: 24 FEB 2010
     Route: 042
     Dates: start: 20060927, end: 20100317
  2. TOCILIZUMAB [Suspect]
     Dosage: PERMANANTLY DISCONTINUED. LASE DOSE PRIOR TO SAE: 30 JUNE 2010
     Route: 042
     Dates: start: 20100407, end: 20100802
  3. TOCILIZUMAB [Suspect]
     Dosage: PATIENT WAS PREVIOUSLY ENROLLED IN THE STUDY WA18063.
     Route: 042
     Dates: start: 20060411
  4. ASPIRIN [Suspect]
     Indication: CORONARY ARTERY DISEASE
     Route: 065
  5. PLAVIX [Suspect]
     Indication: CORONARY ARTERY DISEASE
     Route: 065
  6. LIPITOR [Concomitant]
     Dates: start: 20050101
  7. LASIX [Concomitant]
     Dates: start: 20081201
  8. APRESOLINE [Concomitant]
     Dates: start: 20090319
  9. NIFEDIPINE [Concomitant]
     Dates: start: 20090501
  10. METOPROLOL [Concomitant]
     Dates: start: 20091218
  11. PROPOXYPHENE HCL [Concomitant]
     Dosage: TDD: 2 PRN
     Dates: start: 20020101
  12. POTASSIUM CHLORIDE [Concomitant]
     Route: 048
     Dates: start: 20051101
  13. POTASSIUM CHLORIDE [Concomitant]
     Route: 048
  14. ASCORBIC ACID [Concomitant]
     Dates: start: 20071022
  15. PRILOSEC [Concomitant]
     Route: 048
     Dates: start: 20081201
  16. ARICEPT [Concomitant]
     Dates: start: 20090421
  17. ALENDRONATE SODIUM [Concomitant]
     Dates: start: 20090424
  18. LISINOPRIL [Concomitant]
     Route: 048
     Dates: start: 20091116
  19. LISINOPRIL [Concomitant]
     Route: 048
  20. NORVASC [Concomitant]
     Route: 048
     Dates: start: 20091218
  21. NORVASC [Concomitant]
     Route: 048
  22. PREDNISONE [Concomitant]
     Route: 048
     Dates: start: 20090703
  23. PREDNISONE [Concomitant]
     Route: 048
  24. ASPIRIN [Concomitant]
     Dates: start: 20091218

REACTIONS (2)
  - COLITIS [None]
  - DIVERTICULUM [None]
